FAERS Safety Report 15252658 (Version 1)
Quarter: 2018Q3

REPORT INFORMATION
  Report Type: Spontaneous
  Country: US (occurrence: US)
  Receive Date: 20180807
  Receipt Date: 20180807
  Transmission Date: 20181010
  Serious: No
  Sender: FDA-Public Use
  Company Number: US-RADIUS HEALTH INC.-2018US001029

PATIENT
  Age: 79 Year
  Sex: Female
  Weight: 54 kg

DRUGS (2)
  1. TYMLOS [Suspect]
     Active Substance: ABALOPARATIDE
     Dosage: UNK
     Dates: start: 20180531
  2. TYMLOS [Suspect]
     Active Substance: ABALOPARATIDE
     Indication: OSTEOPOROSIS POSTMENOPAUSAL
     Dosage: 80 MCG, ONCE A DAY
     Route: 058
     Dates: start: 20180410

REACTIONS (6)
  - Abdominal discomfort [Recovered/Resolved]
  - Exfoliative rash [Recovered/Resolved]
  - Injection site rash [Recovered/Resolved]
  - Wrong technique in product usage process [Recovered/Resolved]
  - Psoriasis [Unknown]
  - Acne [Unknown]

NARRATIVE: CASE EVENT DATE: 20180531
